FAERS Safety Report 5399740-X (Version None)
Quarter: 2007Q3

REPORT INFORMATION
  Report Type: 
  Country: None (occurrence: None)
  Receive Date: 20070727
  Receipt Date: 20070718
  Transmission Date: 20080115
  Serious: Yes (Hospitalization)
  Sender: FDA-Public Use
  Company Number: ES-ABBOTT-07P-144-0373626-00

PATIENT
  Sex: Male

DRUGS (5)
  1. NORVIR [Suspect]
     Indication: HIV INFECTION
     Route: 048
     Dates: start: 20060519, end: 20060604
  2. APTIVUS [Suspect]
     Indication: HIV INFECTION
     Route: 048
     Dates: start: 20060519, end: 20060604
  3. TENOFOVIR [Concomitant]
     Indication: HIV INFECTION
     Route: 048
     Dates: start: 20060519, end: 20060604
  4. STAVUDINE [Concomitant]
     Indication: HIV INFECTION
     Route: 048
     Dates: start: 20060519, end: 20060604
  5. ENFUVIRTIDE [Concomitant]
     Indication: HIV INFECTION
     Route: 058
     Dates: start: 20060519, end: 20060604

REACTIONS (7)
  - ASTHENIA [None]
  - BICYTOPENIA [None]
  - BLOOD BILIRUBIN INCREASED [None]
  - DISCOMFORT [None]
  - HEPATITIS CHOLESTATIC [None]
  - PORTAL HYPERTENSION [None]
  - SPLENOMEGALY [None]
